FAERS Safety Report 5236201-2 (Version None)
Quarter: 2007Q1

REPORT INFORMATION
  Report Type: 
  Country: None (occurrence: None)
  Receive Date: 20070212
  Receipt Date: 20061227
  Transmission Date: 20070707
  Serious: Yes (Congenital Anomaly, Other)
  Sender: FDA-Public Use
  Company Number: US-ELI_LILLY_AND_COMPANY-US200602001021

PATIENT
  Sex: Female
  Weight: 1.587 kg

DRUGS (2)
  1. PRENATAL VITAMINS                  /01549301/ [Concomitant]
  2. PROZAC [Suspect]
     Indication: OBSESSIVE-COMPULSIVE DISORDER
     Dosage: 50 MG, DAILY (1/D)

REACTIONS (9)
  - AORTA HYPOPLASIA [None]
  - COARCTATION OF THE AORTA [None]
  - DRUG EXPOSURE DURING PREGNANCY [None]
  - FOETAL DISTRESS SYNDROME [None]
  - PLACENTAL INSUFFICIENCY [None]
  - PREMATURE BABY [None]
  - RESPIRATORY ARREST [None]
  - SMALL FOR DATES BABY [None]
  - VENTRICULAR SEPTAL DEFECT [None]
